FAERS Safety Report 6326772-7 (Version None)
Quarter: 2009Q4

REPORT INFORMATION
  Report Type: 
  Country: None (occurrence: None)
  Receive Date: 20090821
  Receipt Date: 20090806
  Transmission Date: 20100525
  Serious: Yes (Hospitalization)
  Sender: FDA-Public Use
  Company Number: 8050471

PATIENT
  Age: 16 Year
  Sex: Male

DRUGS (3)
  1. KEPPRA [Suspect]
     Indication: EPILEPSY
     Dosage: 1000 MG 1/D PO
     Route: 048
     Dates: start: 20080201, end: 20090405
  2. TEGRETOL [Suspect]
     Indication: EPILEPSY
     Dosage: 200 MG 3/D PO
     Route: 048
     Dates: start: 20090309, end: 20090409
  3. PROCUTA [Suspect]
     Indication: ACNE
     Dosage: 20 MG 2/W PO
     Route: 048
     Dates: start: 20090216, end: 20090410

REACTIONS (9)
  - CELL DEATH [None]
  - CHOLESTASIS [None]
  - DRUG RASH WITH EOSINOPHILIA AND SYSTEMIC SYMPTOMS [None]
  - ECZEMA [None]
  - EOSINOPHILIA [None]
  - LYMPHADENOPATHY [None]
  - MONOCYTOSIS [None]
  - STAPHYLOCOCCAL INFECTION [None]
  - SUPERINFECTION [None]
